FAERS Safety Report 6483557-9 (Version None)
Quarter: 2009Q4

REPORT INFORMATION
  Report Type: 
  Country: None (occurrence: None)
  Receive Date: 20091209
  Receipt Date: 20091201
  Transmission Date: 20100525
  Serious: Yes (Hospitalization, Other)
  Sender: FDA-Public Use
  Company Number: US-SANOFI-AVENTIS-A03200904835

PATIENT
  Age: 76 Year
  Sex: Female

DRUGS (14)
  1. DRONEDARONE [Suspect]
     Indication: ATRIAL FIBRILLATION
     Dosage: UNIT DOSE: 400 MG
     Route: 048
     Dates: start: 20091006, end: 20091007
  2. VERAPAMIL [Concomitant]
     Route: 065
     Dates: end: 20091001
  3. ATENOLOL [Concomitant]
     Route: 065
     Dates: end: 20091001
  4. LISINOPRIL [Concomitant]
     Route: 065
  5. COUMADIN [Concomitant]
     Route: 065
  6. ZOCOR [Concomitant]
     Route: 065
  7. ASPIRIN [Concomitant]
     Route: 065
  8. VITAMIN D [Concomitant]
     Route: 065
  9. MULTI-VITAMINS [Concomitant]
     Route: 065
  10. ASCORBIC ACID [Concomitant]
     Route: 065
  11. TYLENOL (CAPLET) [Concomitant]
     Route: 065
  12. LASIX [Concomitant]
     Route: 065
  13. NITROSTAT [Concomitant]
     Route: 065
  14. LOVENOX [Concomitant]
     Route: 065

REACTIONS (5)
  - ABDOMINAL DISCOMFORT [None]
  - BRADYCARDIA [None]
  - DIZZINESS [None]
  - HYPOTENSION [None]
  - NAUSEA [None]
